FAERS Safety Report 7333671-0 (Version None)
Quarter: 2011Q1

REPORT INFORMATION
  Report Type: 
  Country: None (occurrence: None)
  Receive Date: 20110306
  Receipt Date: 20110224
  Transmission Date: 20110831
  Serious: Yes (Death, Hospitalization, Other)
  Sender: FDA-Public Use
  Company Number: US-ELI_LILLY_AND_COMPANY-US201001002193

PATIENT
  Sex: Female
  Weight: 59.864 kg

DRUGS (22)
  1. SPIRIVA [Concomitant]
     Dosage: 18 MG, DAILY (1/D)
     Route: 065
  2. RAMIPRIL [Concomitant]
     Dosage: 5 MG, 2/D
     Route: 065
  3. SIMVASTATIN [Concomitant]
     Dosage: 40 MG, DAILY (1/D)
     Route: 065
  4. MAGNESIUM [Concomitant]
     Dosage: 400 MG, DAILY (1/D)
     Route: 065
  5. FUROSEMIDE [Concomitant]
     Dosage: 40 MG, DAILY (1/D)
     Route: 065
  6. OXYCODONE [Concomitant]
     Dosage: 10 MG, AS NEEDED
     Route: 065
  7. PREDNISONE [Concomitant]
     Dosage: 20 MG, DAILY (1/D)
     Route: 065
  8. STOOL SOFTENER [Concomitant]
     Dosage: 100 MG, 2/D
     Route: 065
  9. FORTEO [Suspect]
     Indication: OSTEOPOROSIS
     Dosage: 20 UG, DAILY (1/D)
     Route: 058
     Dates: start: 20091111
  10. ASPIRIN [Concomitant]
     Dosage: 81 MG, DAILY (1/D)
     Route: 065
  11. FORTEO [Suspect]
     Dosage: 20 UG, DAILY (1/D)
     Route: 058
     Dates: start: 20091111
  12. DARVOCET [Concomitant]
     Dosage: UNK, AS NEEDED
     Route: 065
  13. CARISOPRODOL [Concomitant]
     Dosage: 350 MG THREE TIMES, AS NEEDED
     Route: 065
  14. INSULIN [Concomitant]
     Dosage: UNK, UNKNOWN
     Route: 065
  15. SOLU-MEDROL [Concomitant]
     Dosage: UNK, UNKNOWN
     Route: 065
  16. CARVEDILOL [Concomitant]
     Dosage: 3.125 MG, 2/D
     Route: 065
  17. OMEPRAZOLE [Concomitant]
     Dosage: 20 MG, DAILY (1/D)
     Route: 065
  18. POTASSIUM [Concomitant]
     Dosage: UNK, DAILY (1/D)
     Route: 065
  19. OXYCODONE [Concomitant]
     Dosage: 20 MG 12 HOUR TABLET, 2/D
     Route: 065
  20. ADVAIR DISKUS 100/50 [Concomitant]
     Dosage: 500-50 D/F, 2/D
     Route: 065
  21. CLONAZEPAM [Concomitant]
     Dosage: 1 MG, 2/D
     Route: 065
  22. ALBUTEROL SULFATE [Concomitant]
     Dosage: UNK, AS NEEDED
     Route: 065

REACTIONS (7)
  - DYSPNOEA [None]
  - PNEUMONIA [None]
  - CARDIAC FAILURE CONGESTIVE [None]
  - SPINAL FRACTURE [None]
  - INJECTION SITE HAEMATOMA [None]
  - CHRONIC OBSTRUCTIVE PULMONARY DISEASE [None]
  - INJECTION SITE HAEMORRHAGE [None]
